FAERS Safety Report 6265291-3 (Version None)
Quarter: 2009Q3

REPORT INFORMATION
  Report Type: 
  Country: None (occurrence: None)
  Receive Date: 20090709
  Receipt Date: 20090709
  Transmission Date: 20100115
  Serious: Yes (Disabling, Other)
  Sender: FDA-Public Use
  Company Number: None

PATIENT
  Age: 64 Year
  Sex: Female
  Weight: 56.6996 kg

DRUGS (1)
  1. ABILIFY [Suspect]
     Indication: DEPRESSION
     Dosage: 5 MG DAILY PO
     Route: 048
     Dates: start: 20070326, end: 20070806

REACTIONS (5)
  - ALOPECIA [None]
  - JAW DISORDER [None]
  - MADAROSIS [None]
  - TARDIVE DYSKINESIA [None]
  - TREMOR [None]
